FAERS Safety Report 6933708-4 (Version None)
Quarter: 2010Q3

REPORT INFORMATION
  Report Type: 
  Country: None (occurrence: None)
  Receive Date: 20100820
  Receipt Date: 20100811
  Transmission Date: 20110219
  Serious: Yes (Other)
  Sender: FDA-Public Use
  Company Number: US-ASTRAZENECA-2010SE31537

PATIENT
  Age: 13509 Day
  Sex: Female
  Weight: 43.1 kg

DRUGS (1)
  1. FASLODEX [Suspect]
     Indication: BREAST CANCER STAGE IV
     Route: 030
     Dates: start: 20100128, end: 20100707

REACTIONS (5)
  - ANXIETY [None]
  - COUGH [None]
  - DYSGEUSIA [None]
  - DYSPNOEA [None]
  - FLUSHING [None]
